FAERS Safety Report 5099281-3 (Version None)
Quarter: 2006Q3

REPORT INFORMATION
  Report Type: 
  Country: None (occurrence: None)
  Receive Date: 20060731
  Receipt Date: 20051128
  Transmission Date: 20061208
  Serious: Yes (Hospitalization)
  Sender: FDA-Public Use
  Company Number: US-2005-025118

PATIENT
  Age: 32 Year
  Sex: Female
  Weight: 59 kg

DRUGS (1)
  1. MAGNEVIST [Suspect]
     Indication: NUCLEAR MAGNETIC RESONANCE IMAGING BRAIN
     Dosage: 13 ML, 1 DOSE, INTRAVENOUS
     Route: 042
     Dates: start: 20051128, end: 20051128

REACTIONS (5)
  - DYSPNOEA [None]
  - OEDEMA MOUTH [None]
  - SPEECH DISORDER [None]
  - SWOLLEN TONGUE [None]
  - URTICARIA LOCALISED [None]
